FAERS Safety Report 19190966 (Version 1)
Quarter: 2021Q2

REPORT INFORMATION
  Report Type: Spontaneous
  Country: CN (occurrence: CN)
  Receive Date: 20210428
  Receipt Date: 20210428
  Transmission Date: 20210717
  Serious: Yes (Other)
  Sender: FDA-Public Use
  Company Number: CN-BAYER-2021-132330

PATIENT
  Age: 30 Year
  Sex: Male

DRUGS (4)
  1. NEXAVAR [Suspect]
     Active Substance: SORAFENIB
     Indication: HEPATIC CANCER RECURRENT
     Dosage: 400 MG, BID
     Dates: start: 20180905
  2. STIVARGA [Suspect]
     Active Substance: REGORAFENIB
     Indication: HEPATIC CANCER RECURRENT
     Dosage: 80 MG, QD (TAKING 3 WEEKS THEN INTERRUPT FOR 1 WEEK)
  3. NEXAVAR [Suspect]
     Active Substance: SORAFENIB
     Indication: HEPATIC CANCER RECURRENT
     Dosage: 400 MG, QD
  4. STIVARGA [Suspect]
     Active Substance: REGORAFENIB
     Indication: HEPATIC CANCER RECURRENT
     Dosage: 120 MG, QD (TAKING 3 WEEKS THEN INTERRUPT FOR 1 WEEK)
     Dates: start: 20191119

REACTIONS (5)
  - Palmar-plantar erythrodysaesthesia syndrome [None]
  - Off label use [None]
  - Alopecia [Recovered/Resolved]
  - Diarrhoea [None]
  - Hepatic cancer [None]

NARRATIVE: CASE EVENT DATE: 20181029
